FAERS Safety Report 6848088-2 (Version None)
Quarter: 2010Q3

REPORT INFORMATION
  Report Type: 
  Country: None (occurrence: None)
  Receive Date: 20100716
  Receipt Date: 20100714
  Transmission Date: 20110219
  Serious: Yes (Death, Other)
  Sender: FDA-Public Use
  Company Number: A0850528A

PATIENT
  Sex: Female

DRUGS (5)
  1. RETROVIR [Suspect]
     Indication: ANTIVIRAL TREATMENT
     Dates: start: 20090318
  2. ISENTRESS [Suspect]
     Indication: ANTIVIRAL TREATMENT
     Dosage: 800MGD PER DAY
     Dates: start: 20100310
  3. NORVIR [Suspect]
     Indication: ANTIVIRAL TREATMENT
     Dates: start: 20100310
  4. PREZISTA [Suspect]
     Indication: ANTIVIRAL TREATMENT
     Dates: start: 20100310
  5. TRUVADA [Suspect]
     Indication: ANTIVIRAL TREATMENT

REACTIONS (7)
  - AORTIC VALVE DISEASE [None]
  - CARDIAC MURMUR [None]
  - CONGENITAL PULMONARY VALVE DISORDER [None]
  - DRUG EXPOSURE DURING PREGNANCY [None]
  - RESPIRATORY ARREST [None]
  - SUDDEN INFANT DEATH SYNDROME [None]
  - VENTRICULAR HYPERTROPHY [None]
